FAERS Safety Report 22683521 (Version 2)
Quarter: 2023Q4

REPORT INFORMATION
  Report Type: Spontaneous
  Country: BR (occurrence: BR)
  Receive Date: 20230708
  Receipt Date: 20231031
  Transmission Date: 20240109
  Serious: Yes (Other)
  Sender: FDA-Public Use
  Company Number: BR-002147023-NVSC2023BR152615

PATIENT
  Sex: Female

DRUGS (4)
  1. ILARIS [Suspect]
     Active Substance: CANAKINUMAB
     Indication: Arthritis bacterial
     Dosage: UNK
     Route: 065
  2. ILARIS [Suspect]
     Active Substance: CANAKINUMAB
     Indication: Pyoderma gangrenosum
  3. ILARIS [Suspect]
     Active Substance: CANAKINUMAB
     Indication: Pyogenic sterile arthritis pyoderma gangrenosum and acne syndrome
  4. GOLIMUMAB [Concomitant]
     Active Substance: GOLIMUMAB
     Indication: Product used for unknown indication
     Dosage: UNK (FOR 10 YEARS)
     Route: 065

REACTIONS (8)
  - Acute aseptic arthritis [Unknown]
  - Condition aggravated [Unknown]
  - Purulent discharge [Unknown]
  - Scar [Unknown]
  - Gait inability [Unknown]
  - Subcutaneous abscess [Unknown]
  - Product availability issue [Unknown]
  - Off label use [Unknown]
